FAERS Safety Report 6580478-8 (Version None)
Quarter: 2010Q1

REPORT INFORMATION
  Report Type: 
  Country: None (occurrence: None)
  Receive Date: 20100212
  Receipt Date: 20100208
  Transmission Date: 20100710
  Serious: Yes (Death)
  Sender: FDA-Public Use
  Company Number: BR-ABBOTT-10P-020-0624882-00

PATIENT
  Sex: Female

DRUGS (1)
  1. CALCIJEX [Suspect]
     Indication: BLOOD PARATHYROID HORMONE INCREASED

REACTIONS (1)
  - INFARCTION [None]
